FAERS Safety Report 15996577 (Version 1)
Quarter: 2019Q1

REPORT INFORMATION
  Report Type: Spontaneous
  Country: US (occurrence: US)
  Receive Date: 20190222
  Receipt Date: 20190222
  Transmission Date: 20190418
  Serious: Yes (Hospitalization)
  Sender: FDA-Public Use
  Company Number: None

PATIENT
  Age: 42 Year
  Sex: Female

DRUGS (8)
  1. TOBI PODHALER [Concomitant]
     Active Substance: TOBRAMYCIN
  2. SODIUUM CHLORIDE [Concomitant]
  3. ZENPEP [Concomitant]
     Active Substance: PANCRELIPASE AMYLASE\PANCRELIPASE LIPASE\PANCRELIPASE PROTEASE
  4. TOBI PODHALER [Suspect]
     Active Substance: TOBRAMYCIN
     Indication: PRODUCT USED FOR UNKNOWN INDICATION
     Dosage: ?          OTHER FREQUENCY:INHALE FOUR (4) CA;?
  5. PULMOZYME [Concomitant]
     Active Substance: DORNASE ALFA
  6. CHOICEFUL MULTIVITAMIN [Concomitant]
  7. PARI LC PLUS NEBULIZER [Concomitant]
  8. ALBUTEROL SULFATE. [Concomitant]
     Active Substance: ALBUTEROL SULFATE

REACTIONS (2)
  - Cough [None]
  - Headache [None]
